FAERS Safety Report 23762019 (Version 1)
Quarter: 2024Q2

REPORT INFORMATION
  Report Type: Spontaneous
  Country: JP (occurrence: JP)
  Receive Date: 20240419
  Receipt Date: 20240419
  Transmission Date: 20240716
  Serious: Yes (Hospitalization)
  Sender: FDA-Public Use
  Company Number: JP-ABBVIE-5720488

PATIENT
  Age: 20 Year
  Sex: Male
  Weight: 55 kg

DRUGS (2)
  1. RINVOQ [Suspect]
     Active Substance: UPADACITINIB
     Indication: Dermatitis atopic
     Dosage: 30 MILLIGRAM
     Route: 048
  2. RINVOQ [Suspect]
     Active Substance: UPADACITINIB
     Indication: Dermatitis atopic
     Dosage: 30 MILLIGRAM
     Route: 048

REACTIONS (8)
  - Impetigo [Recovered/Resolved]
  - White blood cell count increased [Unknown]
  - Pyrexia [Unknown]
  - C-reactive protein increased [Unknown]
  - Herpes zoster [Recovered/Resolved]
  - Wound [Unknown]
  - Skin disorder [Unknown]
  - Eye discharge [Unknown]
